FAERS Safety Report 24591941 (Version 2)
Quarter: 2025Q3

REPORT INFORMATION
  Report Type: Report from Study
  Country: ZA (occurrence: ZA)
  Receive Date: 20241108
  Receipt Date: 20250809
  Transmission Date: 20251021
  Serious: Yes (Other)
  Sender: ALEXION PHARMACEUTICALS
  Company Number: ZA-AstraZeneca-CH-00732625A

PATIENT
  Age: 76 Year
  Sex: Female

DRUGS (10)
  1. DAPAGLIFLOZIN [Suspect]
     Active Substance: DAPAGLIFLOZIN
  2. BUTYLSCOPOLAMINE BROMIDE [Concomitant]
     Active Substance: BUTYLSCOPOLAMINE BROMIDE
  3. ELIQUIS [Concomitant]
     Active Substance: APIXABAN
  4. ZOPICLONE [Concomitant]
     Active Substance: ZOPICLONE
  5. CITALOPRAM HYDROBROMIDE [Concomitant]
     Active Substance: CITALOPRAM HYDROBROMIDE
  6. METFORMIN HYDROCHLORIDE [Concomitant]
     Active Substance: METFORMIN HYDROCHLORIDE
     Indication: Diabetes mellitus
  7. CLOBAZAM [Concomitant]
     Active Substance: CLOBAZAM
     Indication: Anxiety
  8. LISINOPRIL [Concomitant]
     Active Substance: LISINOPRIL
     Indication: Hypertension
  9. GLICLAZIDE [Concomitant]
     Active Substance: GLICLAZIDE
     Indication: Diabetes mellitus
  10. EUTHYROX [Concomitant]
     Active Substance: LEVOTHYROXINE SODIUM
     Indication: Hypothyroidism

REACTIONS (5)
  - Gastrointestinal infection [Unknown]
  - Renal failure [Unknown]
  - Cholecystitis infective [Unknown]
  - Gallbladder disorder [Unknown]
  - Gastrointestinal disorder [Unknown]
